FAERS Safety Report 13300767 (Version 1)
Quarter: 2017Q1

REPORT INFORMATION
  Report Type: Spontaneous
  Country: GB (occurrence: GB)
  Receive Date: 20170307
  Receipt Date: 20170307
  Transmission Date: 20170428
  Serious: Yes (Other)
  Sender: FDA-Public Use
  Company Number: GB-ACCORD-048726

PATIENT
  Age: 50 Year
  Sex: Female

DRUGS (10)
  1. COLECALCIFEROL [Concomitant]
     Active Substance: CHOLECALCIFEROL
  2. IBUPROFEN. [Concomitant]
     Active Substance: IBUPROFEN
  3. TRANEXAMIC ACID. [Concomitant]
     Active Substance: TRANEXAMIC ACID
  4. SERTRALINE [Suspect]
     Active Substance: SERTRALINE HYDROCHLORIDE
     Indication: ADJUSTMENT DISORDER WITH DEPRESSED MOOD
     Route: 048
     Dates: start: 20160125, end: 20170206
  5. PARACETAMOL [Concomitant]
     Active Substance: ACETAMINOPHEN
  6. OMEPRAZOLE. [Concomitant]
     Active Substance: OMEPRAZOLE
  7. DICLOFENAC [Concomitant]
     Active Substance: DICLOFENAC
  8. HYDROXOCOBALAMIN/HYDROXOCOBALAMIN ACETATE/HYDROXOCOBALAMIN HYDROCHLORIDE [Concomitant]
  9. BETAHISTINE [Concomitant]
     Active Substance: BETAHISTINE
  10. TRAMADOL ACTAVIS UK [Concomitant]

REACTIONS (4)
  - Anxiety [Recovering/Resolving]
  - Decreased appetite [Not Recovered/Not Resolved]
  - Malaise [Recovered/Resolved]
  - Ageusia [Not Recovered/Not Resolved]

NARRATIVE: CASE EVENT DATE: 20170128
